FAERS Safety Report 4334931-8 (Version None)
Quarter: 2004Q2

REPORT INFORMATION
  Report Type: 
  Country: None (occurrence: None)
  Receive Date: 20040408
  Receipt Date: 20040319
  Transmission Date: 20050107
  Serious: Yes (Other)
  Sender: FDA-Public Use
  Company Number: PHRM2004FR01270

PATIENT
  Age: 55 Year
  Sex: Female
  Weight: 90 kg

DRUGS (5)
  1. NEORAL [Suspect]
     Indication: T-CELL LYMPHOMA
     Dosage: 190 MG, BID
     Route: 048
     Dates: start: 20031202
  2. VALACYCLOVIR HCL [Concomitant]
     Dosage: 2 DF DAILY
     Dates: start: 20031202
  3. TAREG [Concomitant]
     Indication: HYPERTENSION
     Route: 048
  4. AMAREL [Concomitant]
     Indication: DIABETES MELLITUS NON-INSULIN-DEPENDENT
     Route: 048
  5. GLUCOPHAGE [Concomitant]
     Indication: DIABETES MELLITUS NON-INSULIN-DEPENDENT

REACTIONS (2)
  - PAPILLOEDEMA [None]
  - VISUAL ACUITY REDUCED [None]
